FAERS Safety Report 15255433 (Version 1)
Quarter: 2018Q3

REPORT INFORMATION
  Report Type: Spontaneous
  Country: US (occurrence: US)
  Receive Date: 20180717
  Receipt Date: 20180717
  Transmission Date: 20181010
  Serious: Yes (Other)
  Sender: FDA-Public Use
  Company Number: None

PATIENT
  Age: 29 Year
  Sex: Female
  Weight: 56.25 kg

DRUGS (1)
  1. NEOMYCIN POLYMYXIN B HYDROCORTISONE [Suspect]
     Active Substance: HYDROCORTISONE\NEOMYCIN\POLYMYXIN B
     Indication: EAR INFECTION
     Dosage: ?          QUANTITY:4 GTT DROP(S);?
     Route: 001

REACTIONS (4)
  - Application site hypersensitivity [None]
  - Application site rash [None]
  - Application site pain [None]
  - Application site pruritus [None]

NARRATIVE: CASE EVENT DATE: 20180225
